FAERS Safety Report 9536024 (Version 1)
Quarter: 2013Q2

REPORT INFORMATION
  Report Type: Spontaneous
  Country: US (occurrence: None)
  Receive Date: 20130517
  Receipt Date: 20130517
  Transmission Date: 20140414
  Serious: Yes (Other)
  Sender: FDA-Public Use
  Company Number: 1000043988

PATIENT
  Sex: Female

DRUGS (1)
  1. VIIBRYD (VILAZODONE HYDROCHLORIDE) (TABLETS) [Suspect]
     Route: 048

REACTIONS (4)
  - Weight increased [None]
  - Increased appetite [None]
  - Insomnia [None]
  - Diarrhoea [None]
